FAERS Safety Report 20044108 (Version 1)
Quarter: 2021Q4

REPORT INFORMATION
  Report Type: Spontaneous
  Country: US (occurrence: US)
  Receive Date: 20211108
  Receipt Date: 20211108
  Transmission Date: 20220303
  Serious: Yes (Other)
  Sender: FDA-Public Use
  Company Number: US-GLAXOSMITHKLINE-USCH2021071943

PATIENT
  Sex: Female

DRUGS (1)
  1. METHYLCELLULOSES [Suspect]
     Active Substance: METHYLCELLULOSES
     Indication: Change of bowel habit
     Dosage: 2 DF, QD
     Dates: start: 202110

REACTIONS (5)
  - Intestinal obstruction [Unknown]
  - Abdominal pain upper [Unknown]
  - Abdominal distension [Unknown]
  - Pain [Unknown]
  - Drug ineffective [Unknown]
